FAERS Safety Report 25989003 (Version 2)
Quarter: 2025Q4

REPORT INFORMATION
  Report Type: Spontaneous
  Country: EU (occurrence: None)
  Receive Date: 20251103
  Receipt Date: 20251128
  Transmission Date: 20260118
  Serious: No
  Sender: UCB
  Company Number: EU-NEURAXPHARM PHARMACEUTICALS, S.L-CZ-NEU-25-114488

PATIENT
  Age: 39 Year
  Weight: 97 kg

DRUGS (9)
  1. LACOSAMIDE [Suspect]
     Active Substance: LACOSAMIDE
     Indication: Status epilepticus
     Dosage: 50 MILLIGRAM, 2X/DAY (BID)
  2. LACOSAMIDE [Suspect]
     Active Substance: LACOSAMIDE
     Dosage: 150 MILLIGRAM, 2X/DAY (BID)
  3. LACOSAMIDE [Suspect]
     Active Substance: LACOSAMIDE
     Dosage: LACOSAMIDE DOSE WAS  INCREASED IN STAGES, (UP TO 200-0-300 MG
  4. LACOSAMIDE [Suspect]
     Active Substance: LACOSAMIDE
     Dosage: 150 MILLIGRAM, 2X/DAY (BID), , LACOSAMIDE WAS REDUCED GRADUALLY.
  5. VALPROATE [Concomitant]
     Active Substance: VALPROIC ACID
     Indication: Seizure
     Dosage: 300 MILLIGRAM, 2X/DAY (BID)
  6. PERAMPANEL [Concomitant]
     Active Substance: PERAMPANEL
     Indication: Status epilepticus
     Dosage: 4 MILLIGRAM
  7. PHENOBARBITAL [Concomitant]
     Active Substance: PHENOBARBITAL
     Indication: Epilepsy
  8. LEVETIRACETAM [Concomitant]
     Active Substance: LEVETIRACETAM
     Indication: Epilepsy
  9. VALPROIC ACID [Concomitant]
     Active Substance: VALPROIC ACID
     Indication: Epilepsy
     Dosage: 1000 MILLIGRAM, 2X/DAY (BID)

REACTIONS (1)
  - Overdose [Unknown]
